FAERS Safety Report 16282448 (Version 6)
Quarter: 2020Q3

REPORT INFORMATION
  Report Type: Report from Study
  Country: UA (occurrence: UA)
  Receive Date: 20190507
  Receipt Date: 20190612
  Transmission Date: 20201104
  Serious: Yes (Life-Threatening, Hospitalization)
  Sender: FDA-Public Use
  Company Number: UA-JNJFOC-20190503431

PATIENT
  Age: 67 Year
  Sex: Male
  Weight: 58 kg

DRUGS (14)
  1. FUROSEMIDE. [Concomitant]
     Active Substance: FUROSEMIDE
     Indication: DIURETIC THERAPY
     Dates: start: 20190504, end: 20190504
  2. SORBITOL. [Concomitant]
     Active Substance: SORBITOL
     Indication: DUODENAL ULCER
  3. LACTULOSE. [Concomitant]
     Active Substance: LACTULOSE
     Indication: LAXATIVE SUPPORTIVE CARE
     Dates: start: 20190503
  4. METOCLOPRAMIDE. [Concomitant]
     Active Substance: METOCLOPRAMIDE
     Indication: GASTROINTESTINAL MOTILITY DISORDER
     Dates: start: 20190503
  5. ONDANSETRON [Concomitant]
     Active Substance: ONDANSETRON
     Indication: PROPHYLAXIS
     Dates: start: 20190503
  6. SORBITOL. [Concomitant]
     Active Substance: SORBITOL
     Indication: OESOPHAGITIS
  7. AMIKACIN. [Concomitant]
     Active Substance: AMIKACIN
     Indication: ANTI-INFECTIVE THERAPY
  8. OLICLINOMEL N4?440 E [Concomitant]
     Indication: NUTRITIONAL SUPPLEMENTATION
     Dates: start: 20190503, end: 20190506
  9. ERDAFITINIB. [Suspect]
     Active Substance: ERDAFITINIB
     Indication: TRANSITIONAL CELL CARCINOMA
     Route: 048
     Dates: start: 20190221, end: 20190501
  10. CHLORPROMAZINE. [Concomitant]
     Active Substance: CHLORPROMAZINE
     Indication: PSYCHOTIC DISORDER
     Dates: start: 20190503, end: 20190504
  11. CLARITHROMYCIN. [Concomitant]
     Active Substance: CLARITHROMYCIN
     Indication: ANTI-INFECTIVE THERAPY
  12. ONDANSETRON [Concomitant]
     Active Substance: ONDANSETRON
     Indication: HICCUPS
     Dates: start: 20190503
  13. CHLORPROMAZINE. [Concomitant]
     Active Substance: CHLORPROMAZINE
     Indication: HICCUPS
     Dates: start: 20190503, end: 20190504
  14. METOCLOPRAMIDE. [Concomitant]
     Active Substance: METOCLOPRAMIDE
     Indication: HICCUPS
     Dates: start: 20190503

REACTIONS (1)
  - Duodenal ulcer haemorrhage [Recovered/Resolved]

NARRATIVE: CASE EVENT DATE: 20190501
